FAERS Safety Report 8303626-8 (Version None)
Quarter: 2012Q2

REPORT INFORMATION
  Report Type: 
  Country: None (occurrence: None)
  Receive Date: 20120418
  Receipt Date: 20120411
  Transmission Date: 20120825
  Serious: Yes (Death, Life-Threatening, Other)
  Sender: FDA-Public Use
  Company Number: 2011SP060038

PATIENT
  Age: 42 Year
  Sex: Male
  Weight: 84 kg

DRUGS (14)
  1. KYTRIL /01178102/ [Concomitant]
  2. ZONISAMIDE [Concomitant]
  3. ISOZOL [Concomitant]
  4. DEPAKENE [Suspect]
     Indication: EPILEPSY
     Dosage: PO
     Route: 048
     Dates: start: 20061111, end: 20090907
  5. TOPINA (TOPIRAMATE) [Concomitant]
  6. PHENOBARBITAL TAB [Concomitant]
  7. PHENYTOIN [Suspect]
     Indication: STATUS EPILEPTICUS
     Dates: start: 20090625, end: 20090907
  8. TEMODAL [Suspect]
     Indication: GLIOBLASTOMA MULTIFORME
     Dosage: 75 MG/M2;QD;PO, 150 MG/M2;QD;PO, 150 MG/M2;QD;PO, 150 MG/M2;QD;PO
     Route: 048
     Dates: start: 20090928, end: 20100504
  9. TEMODAL [Suspect]
     Indication: GLIOBLASTOMA MULTIFORME
     Dosage: 75 MG/M2;QD;PO, 150 MG/M2;QD;PO, 150 MG/M2;QD;PO, 150 MG/M2;QD;PO
     Route: 048
     Dates: start: 20100611, end: 20101005
  10. TEMODAL [Suspect]
     Indication: GLIOBLASTOMA MULTIFORME
     Dosage: 75 MG/M2;QD;PO, 150 MG/M2;QD;PO, 150 MG/M2;QD;PO, 150 MG/M2;QD;PO
     Route: 048
     Dates: start: 20070125, end: 20090518
  11. TEMODAL [Suspect]
     Indication: GLIOBLASTOMA MULTIFORME
     Dosage: 75 MG/M2;QD;PO, 150 MG/M2;QD;PO, 150 MG/M2;QD;PO, 150 MG/M2;QD;PO
     Route: 048
     Dates: start: 20061128, end: 20061226
  12. DIPRIVAN [Concomitant]
  13. TEGRETOL [Suspect]
     Indication: STATUS EPILEPTICUS
     Dosage: PO
     Route: 048
     Dates: start: 20090625, end: 20090907
  14. BIOFERMIN (LACTOMIN) [Concomitant]

REACTIONS (8)
  - DIARRHOEA [None]
  - GLIOBLASTOMA MULTIFORME [None]
  - NEOPLASM PROGRESSION [None]
  - STATUS EPILEPTICUS [None]
  - ACUTE RESPIRATORY DISTRESS SYNDROME [None]
  - MULTI-ORGAN FAILURE [None]
  - DRUG RASH WITH EOSINOPHILIA AND SYSTEMIC SYMPTOMS [None]
  - HEPATORENAL FAILURE [None]
